FAERS Safety Report 12770480 (Version 5)
Quarter: 2017Q1

REPORT INFORMATION
  Report Type: Report from Study
  Country: US (occurrence: US)
  Receive Date: 20160922
  Receipt Date: 20170314
  Transmission Date: 20170428
  Serious: Yes (Hospitalization, Other)
  Sender: FDA-Public Use
  Company Number: PHEH2016US023517

PATIENT
  Sex: Female

DRUGS (2)
  1. ARIMIDEX [Suspect]
     Active Substance: ANASTROZOLE
     Indication: BREAST CANCER
     Route: 065
  2. ENTRESTO [Suspect]
     Active Substance: SACUBITRIL\VALSARTAN
     Indication: PRODUCT USED FOR UNKNOWN INDICATION
     Dosage: UNK, BID
     Route: 065

REACTIONS (11)
  - Dementia [Unknown]
  - Dysgraphia [Unknown]
  - Dehydration [Unknown]
  - Confusional state [Unknown]
  - Cardiac failure congestive [Unknown]
  - Blood glucose increased [Unknown]
  - Tooth loss [Unknown]
  - Weight decreased [Unknown]
  - Breast cancer recurrent [Unknown]
  - Hypoacusis [Unknown]
  - Gait disturbance [Unknown]
